FAERS Safety Report 18989600 (Version 4)
Quarter: 2021Q4

REPORT INFORMATION
  Report Type: Report from Study
  Country: US (occurrence: US)
  Receive Date: 20210309
  Receipt Date: 20211222
  Transmission Date: 20220303
  Serious: No
  Sender: FDA-Public Use
  Company Number: NVSC2021US054666

PATIENT
  Age: 38 Year
  Sex: Female

DRUGS (2)
  1. COSENTYX [Suspect]
     Active Substance: SECUKINUMAB
     Indication: Psoriatic arthropathy
     Dosage: 150 MG, QW (150 MG EVERY WEEK FOR 5 WEEKS, THEN EVERY 4 WEEKS) (BENEATH THE SKIN, USUALLY VIA INJECT
     Route: 058
     Dates: start: 20210204
  2. COSENTYX [Suspect]
     Active Substance: SECUKINUMAB
     Dosage: 150 MG, OTHER(EVERY 15 DAYS)
     Route: 058

REACTIONS (3)
  - Pruritus [Unknown]
  - Arthralgia [Unknown]
  - Off label use [Unknown]

NARRATIVE: CASE EVENT DATE: 20210204
